FAERS Safety Report 20167713 (Version 1)
Quarter: 2021Q4

REPORT INFORMATION
  Report Type: Spontaneous
  Country: US (occurrence: US)
  Receive Date: 20211210
  Receipt Date: 20211210
  Transmission Date: 20220303
  Serious: Yes (Hospitalization)
  Sender: FDA-Public Use
  Company Number: US-AVET LIFESCIENCES LTD-2021-AVET-000069

PATIENT
  Age: 10 Year
  Sex: Male

DRUGS (2)
  1. PROPOFOL [Interacting]
     Active Substance: PROPOFOL
     Indication: Sedation
  2. NOREPINEPHRINE [Interacting]
     Active Substance: NOREPINEPHRINE
     Indication: Blood pressure management
     Dosage: UNK

REACTIONS (2)
  - Propofol infusion syndrome [Recovered/Resolved]
  - Drug interaction [Recovered/Resolved]
